FAERS Safety Report 10176070 (Version 1)
Quarter: 2014Q2

REPORT INFORMATION
  Report Type: Spontaneous
  Country: US (occurrence: None)
  Receive Date: 20140514
  Receipt Date: 20140514
  Transmission Date: 20141212
  Serious: Yes (Death, Other)
  Sender: FDA-Public Use
  Company Number: 2014-19519

PATIENT
  Age: 86 Year
  Sex: Male

DRUGS (18)
  1. EYELEA [Suspect]
     Indication: RETINAL VEIN OCCLUSION
     Dates: start: 20130204, end: 20130304
  2. BRIMONIDINE [Concomitant]
  3. COSOPT FREE (DORZOLAMIDE  HYDROCHLORIDE, TIMOLOL MALEATE) [Concomitant]
  4. TRAVATAN Z (TRAVOPROST) [Concomitant]
  5. ASCORBIC ACID (ASCORBIC ACID) [Concomitant]
  6. ASPIRIN (ACETYLSALICYLIC ACID) [Concomitant]
  7. D3 (COLECALCIFEROL) [Concomitant]
  8. DOXAZOCIN (DOXAZOSIN MESILATE) [Concomitant]
  9. GABAPENTIN (GABAPENTIN) [Concomitant]
  10. METOPROLOL (METOPROLOL) [Concomitant]
  11. MILK OF MAGNEISUM (MAGNESIUM HYDROCHLORIDE) [Concomitant]
  12. MULTIVITAMIN AND MINERAL  (ASCORBIC ACID, CALCIUM PANTOTHENATE, CALCIUM PHOSPHATE DIBASIC, COLECALCIFEROL, COPPER SULFATE, CYANOCOBALMIN, DL-ALPHA TOCOPHEROL ACETATE, FERROUS FUMARATE, MAGNEISUM HYDROCHLORIDE, RETINOL ACETATE, RIBOFLAVIN, THIAMINE MONONI [Concomitant]
  13. OMEGA/00661201/OMEPRAZOLE) CAPSULE [Concomitant]
  14. MIRAPEX (PRAMIPEXOLE DIHYDROCHLORIDE) [Concomitant]
  15. PSYLLIUM /01328801/(PLANTAGO AFRA) [Concomitant]
  16. VESICARE (SOLIFENACIN SUCCINATE) [Concomitant]
  17. TRIAMETERENE AND HYDROCHLOROTHIAZIDE (HYDROCHLOROTHIAZIDE, TRIAMETERENE) [Concomitant]
  18. VITAMIN E /00110501 (TOCOPHEROL) [Concomitant]

REACTIONS (1)
  - Death [None]
